FAERS Safety Report 4985595-1 (Version None)
Quarter: 2006Q2

REPORT INFORMATION
  Report Type: 
  Country: None (occurrence: None)
  Receive Date: 20060428
  Receipt Date: 20060426
  Transmission Date: 20061013
  Serious: Yes (Other)
  Sender: FDA-Public Use
  Company Number: GB-BOEHRINGER INGELHEIM PHARMACEUTICALS, INC.-2006-UK-02254UK

PATIENT
  Age: 46 Year
  Sex: Female

DRUGS (6)
  1. PRAMIPEXOLE DIHYDROCHLORIDE [Suspect]
     Route: 065
  2. AMOXICILLIN [Suspect]
     Indication: INFECTION
     Route: 048
  3. LEVODOPA [Suspect]
     Indication: PARKINSON'S DISEASE
     Route: 048
  4. CARBIDOPA [Suspect]
     Indication: PARKINSON'S DISEASE
     Route: 048
  5. QUININE [Concomitant]
     Route: 048
  6. SERTRALINE HYDROCHLORIDE [Concomitant]
     Route: 048

REACTIONS (2)
  - ANAPHYLACTIC REACTION [None]
  - DRUG INTERACTION [None]
